FAERS Safety Report 9933576 (Version 1)
Quarter: 2014Q1

REPORT INFORMATION
  Report Type: Spontaneous
  Country: US (occurrence: US)
  Receive Date: 20140228
  Receipt Date: 20140228
  Transmission Date: 20141002
  Serious: No
  Sender: FDA-Public Use
  Company Number: US-MYLANLABS-2013S1024906

PATIENT
  Age: 59 Year
  Sex: Female
  Weight: 54.43 kg

DRUGS (8)
  1. AMNESTEEM CAPSULES [Suspect]
     Indication: ACNE
     Route: 048
     Dates: start: 20131017
  2. AMNESTEEM CAPSULES [Suspect]
     Indication: SEBORRHOEA
     Route: 048
     Dates: start: 20131017
  3. WELLBUTRIN [Concomitant]
     Route: 048
  4. PROZAC [Concomitant]
     Route: 048
  5. ADVAIR [Concomitant]
     Dosage: INHALER
     Route: 055
  6. DIOVAN [Concomitant]
     Route: 048
  7. VIT D [Concomitant]
     Route: 048
  8. PREMPRO [Concomitant]
     Route: 048

REACTIONS (1)
  - Rash [Not Recovered/Not Resolved]
